FAERS Safety Report 4585946-6 (Version None)
Quarter: 2005Q1

REPORT INFORMATION
  Report Type: 
  Country: None (occurrence: None)
  Receive Date: 20050214
  Receipt Date: 20050202
  Transmission Date: 20050727
  Serious: Yes (Hospitalization)
  Sender: FDA-Public Use
  Company Number: GBWYE399204FEB05

PATIENT
  Age: 69 Year

DRUGS (3)
  1. ADVIL [Suspect]
     Indication: ARTHRITIS
     Dosage: 400MG
     Route: 048
     Dates: end: 20041231
  2. LISINOPRIL [Suspect]
     Indication: HYPERTENSION
     Dosage: 5 MG
     Route: 048
     Dates: end: 20041231
  3. BENDROFLUAZIDE (BENDROFLUMETHIAZIDE) [Concomitant]

REACTIONS (2)
  - REFLUX OESOPHAGITIS [None]
  - RENAL FAILURE ACUTE [None]
